FAERS Safety Report 6575004-3 (Version None)
Quarter: 2010Q1

REPORT INFORMATION
  Report Type: 
  Country: None (occurrence: None)
  Receive Date: 20100209
  Receipt Date: 20100127
  Transmission Date: 20100710
  Serious: Yes (Congenital Anomaly, Other)
  Sender: FDA-Public Use
  Company Number: US-AMGEN-US385975

PATIENT
  Sex: Male
  Weight: 1.14 kg

DRUGS (16)
  1. ENBREL [Suspect]
     Route: 064
     Dates: start: 20090704, end: 20091123
  2. VITAMIN TAB [Concomitant]
     Route: 064
     Dates: start: 20090603, end: 20091224
  3. PREDNISONE [Concomitant]
     Route: 064
     Dates: start: 20090603, end: 20091224
  4. VIVELLE [Concomitant]
     Route: 064
     Dates: start: 20090603, end: 20090729
  5. PROGESTERONE [Concomitant]
     Route: 064
     Dates: start: 20090603, end: 20090812
  6. TYLENOL-500 [Concomitant]
     Route: 064
     Dates: start: 20090603, end: 20090821
  7. TUMS [Concomitant]
     Route: 064
     Dates: start: 20090701, end: 20091224
  8. FIORICET [Concomitant]
     Route: 064
     Dates: start: 20090901, end: 20091013
  9. PERCOCET [Concomitant]
     Route: 064
     Dates: start: 20091014, end: 20091209
  10. PHENERGAN HCL [Concomitant]
     Route: 064
     Dates: start: 20091012, end: 20091209
  11. INFLUENZA VACCINE [Concomitant]
     Route: 064
     Dates: start: 20090928, end: 20090928
  12. BABY ASPIRIN [Concomitant]
     Route: 064
     Dates: start: 20090902, end: 20091224
  13. PRILOSEC [Concomitant]
     Route: 064
     Dates: start: 20091008, end: 20091224
  14. DEMEROL [Concomitant]
     Route: 064
     Dates: start: 20091209, end: 20091209
  15. LOVENOX [Concomitant]
     Route: 064
     Dates: start: 20091201, end: 20091223
  16. TYLENOL COLD AND FLU [Concomitant]
     Route: 064
     Dates: start: 20091015, end: 20091015

REACTIONS (5)
  - BASAL GANGLIA HAEMORRHAGE [None]
  - INFANTILE APNOEIC ATTACK [None]
  - JAUNDICE NEONATAL [None]
  - PREMATURE BABY [None]
  - TALIPES [None]
